FAERS Safety Report 20383333 (Version 1)
Quarter: 2022Q1

REPORT INFORMATION
  Report Type: Spontaneous
  Country: US (occurrence: US)
  Receive Date: 20220127
  Receipt Date: 20220127
  Transmission Date: 20220424
  Serious: No
  Sender: FDA-Public Use
  Company Number: US-ORGANON-O2201USA001051

PATIENT
  Age: 30 Year
  Sex: Female

DRUGS (4)
  1. ELOCON [Suspect]
     Active Substance: MOMETASONE FUROATE
     Indication: Morphoea
     Dosage: UNK
  2. CALCIPOTRIENE [Concomitant]
     Active Substance: CALCIPOTRIENE
     Indication: Morphoea
     Dosage: UNK
  3. CLOBETASOL [Concomitant]
     Active Substance: CLOBETASOL
     Indication: Morphoea
  4. TRIAMCINOLONE [Concomitant]
     Active Substance: TRIAMCINOLONE
     Indication: Morphoea
     Dosage: UNK, INTRALESIONAL

REACTIONS (1)
  - Product use in unapproved indication [Unknown]
